FAERS Safety Report 5964107-X (Version None)
Quarter: 2008Q4

REPORT INFORMATION
  Report Type: 
  Country: None (occurrence: None)
  Receive Date: 20081124
  Receipt Date: 20081118
  Transmission Date: 20090506
  Serious: Yes (Other)
  Sender: FDA-Public Use
  Company Number: BR-ROXANE LABORATORIES, INC.-2008-RO-00266RO

PATIENT
  Age: 33 Year
  Sex: Female
  Weight: 56 kg

DRUGS (5)
  1. MYCOPHENOLATE MOFETIL [Suspect]
     Indication: IMMUNOSUPPRESSION
     Dosage: 1500MG
  2. PREDNISONE TAB [Suspect]
     Indication: IMMUNOSUPPRESSION
  3. CYCLOSPORINE [Suspect]
     Indication: IMMUNOSUPPRESSION
  4. PULMONARY VASODILATORS [Suspect]
     Indication: CARDIAC DISORDER
  5. SOLU-MEDROL [Concomitant]
     Indication: HEART TRANSPLANT REJECTION
     Dosage: 500MG

REACTIONS (1)
  - HEART TRANSPLANT REJECTION [None]
